FAERS Safety Report 9465131 (Version 2)
Quarter: 2013Q3

REPORT INFORMATION
  Report Type: Report from Study
  Country: VE (occurrence: VE)
  Receive Date: 20130819
  Receipt Date: 20130819
  Transmission Date: 20140515
  Serious: Yes (Hospitalization, Other)
  Sender: FDA-Public Use
  Company Number: VE-ABBOTT-13P-178-1056436-00

PATIENT
  Age: 53 Year
  Sex: Female
  Weight: 64 kg

DRUGS (3)
  1. HUMIRA [Suspect]
     Indication: CROHN^S DISEASE
     Route: 058
     Dates: start: 20120613, end: 20130113
  2. MESALAZINE [Concomitant]
     Indication: CROHN^S DISEASE
     Dosage: C-8H, ROUTE VO
     Dates: start: 20130218
  3. PREDNISONA [Concomitant]
     Indication: CROHN^S DISEASE
     Dosage: DAILY, ROUTE VO
     Dates: start: 20130202

REACTIONS (4)
  - Colitis [Recovered/Resolved]
  - Amoebic dysentery [Recovered/Resolved]
  - Rectal haemorrhage [Recovered/Resolved]
  - Weight decreased [Recovering/Resolving]
